FAERS Safety Report 14491084 (Version 4)
Quarter: 2020Q4

REPORT INFORMATION
  Report Type: Spontaneous
  Country: US (occurrence: US)
  Receive Date: 20180206
  Receipt Date: 20201222
  Transmission Date: 20210113
  Serious: Yes (Other)
  Sender: FDA-Public Use
  Company Number: US-PFIZER INC-2017265380

PATIENT
  Age: 58 Year
  Sex: Female
  Weight: 85.73 kg

DRUGS (2)
  1. XELJANZ XR [Suspect]
     Active Substance: TOFACITINIB CITRATE
     Indication: RHEUMATOID ARTHRITIS
     Dosage: 11 MG, 1X/DAY
     Route: 048
     Dates: end: 201906
  2. XELJANZ XR [Suspect]
     Active Substance: TOFACITINIB CITRATE
     Indication: ARTHRITIS
     Dosage: 11 MG
     Dates: start: 202012

REACTIONS (6)
  - Vitamin D decreased [Unknown]
  - Nasopharyngitis [Unknown]
  - Infection [Unknown]
  - Gangrene [Unknown]
  - Osteomyelitis [Unknown]
  - Illness [Unknown]

NARRATIVE: CASE EVENT DATE: 201906
